FAERS Safety Report 20040356 (Version 1)
Quarter: 2021Q4

REPORT INFORMATION
  Report Type: Spontaneous
  Country: US (occurrence: None)
  Receive Date: 20211107
  Receipt Date: 20211107
  Transmission Date: 20220303
  Serious: Yes (Hospitalization)
  Sender: FDA-Public Use
  Company Number: None

PATIENT
  Age: 81 Year
  Sex: Male
  Weight: 73 kg

DRUGS (2)
  1. BAMLANIVIMAB [Suspect]
     Active Substance: BAMLANIVIMAB
     Indication: COVID-19
     Dosage: FREQUENCY : ONCE;?
     Route: 042
     Dates: start: 20211107, end: 20211107
  2. ETESEVIMAB [Suspect]
     Active Substance: ETESEVIMAB
     Indication: COVID-19
     Dosage: FREQUENCY : ONCE;?
     Route: 042
     Dates: start: 20211107, end: 20211107

REACTIONS (9)
  - Bradycardia [None]
  - Atrioventricular block second degree [None]
  - Ventricular extrasystoles [None]
  - Atrioventricular block first degree [None]
  - Infusion related reaction [None]
  - COVID-19 pneumonia [None]
  - Presyncope [None]
  - Toxicity to various agents [None]
  - Conduction disorder [None]

NARRATIVE: CASE EVENT DATE: 20211107
